FAERS Safety Report 14834456 (Version 1)
Quarter: 2018Q2

REPORT INFORMATION
  Report Type: Spontaneous
  Country: US (occurrence: US)
  Receive Date: 20180501
  Receipt Date: 20180501
  Transmission Date: 20180711
  Serious: No
  Sender: FDA-Public Use
  Company Number: US-NAPO PHARMACEUTICALS, INC.-2046924

PATIENT
  Age: 46 Year
  Sex: Male

DRUGS (2)
  1. UNKNOWN ANTI-RETROVIRAL THERAPY [Concomitant]
     Route: 065
  2. FULYZAQ [Suspect]
     Active Substance: CROFELEMER
     Route: 065

REACTIONS (1)
  - Constipation [Recovered/Resolved]
